FAERS Safety Report 7125115-9 (Version None)
Quarter: 2010Q4

REPORT INFORMATION
  Report Type: 
  Country: None (occurrence: None)
  Receive Date: 20101129
  Receipt Date: 20101019
  Transmission Date: 20110411
  Serious: Yes (Other)
  Sender: FDA-Public Use
  Company Number: US-AMGEN-TCS440557

PATIENT

DRUGS (2)
  1. ENBREL [Suspect]
     Indication: PSORIATIC ARTHROPATHY
     Dosage: 50 MG, QWK
     Route: 058
     Dates: start: 20100908
  2. ENBREL [Suspect]
     Dosage: 50 MG, Q2WK

REACTIONS (14)
  - CHEST DISCOMFORT [None]
  - CHEST PAIN [None]
  - COUGH [None]
  - DISTURBANCE IN ATTENTION [None]
  - DYSPHAGIA [None]
  - DYSPNOEA [None]
  - INJECTION SITE ERYTHEMA [None]
  - INJECTION SITE HAEMATOMA [None]
  - INJECTION SITE PRURITUS [None]
  - INJECTION SITE SWELLING [None]
  - INJECTION SITE WARMTH [None]
  - OROPHARYNGEAL PAIN [None]
  - RESPIRATORY TRACT CONGESTION [None]
  - VIRAL INFECTION [None]
